FAERS Safety Report 24429688 (Version 1)
Quarter: 2024Q4

REPORT INFORMATION
  Report Type: Spontaneous
  Country: US (occurrence: US)
  Receive Date: 20241012
  Receipt Date: 20241012
  Transmission Date: 20250115
  Serious: No
  Sender: CELLTRION
  Company Number: US-CELLTRION INC.-2024US016992

PATIENT

DRUGS (6)
  1. INFLIXIMAB [Suspect]
     Active Substance: INFLIXIMAB
     Indication: Adiposis dolorosa
     Dosage: 3 MG/KG EVERY 8 WEEKS AFTER LOADING DOSES
     Dates: start: 201904
  2. INFLIXIMAB [Suspect]
     Active Substance: INFLIXIMAB
     Dosage: 3 MG/KG EVERY 8 WEEKS
     Dates: start: 201906, end: 201912
  3. INFLIXIMAB [Suspect]
     Active Substance: INFLIXIMAB
     Dosage: 5 MG/KG
     Dates: start: 202102
  4. METHOTREXATE [Suspect]
     Active Substance: METHOTREXATE
     Indication: Adiposis dolorosa
     Dosage: 25 MG WEEKLY
     Route: 058
  5. METHOTREXATE [Suspect]
     Active Substance: METHOTREXATE
     Dosage: 10 MG WEEKLY
  6. NORCO [Concomitant]
     Active Substance: ACETAMINOPHEN\HYDROCODONE BITARTRATE
     Indication: Pain
     Dosage: 10 MG EVERY FOUR HOURS AS NEEDED

REACTIONS (2)
  - Therapeutic response changed [Unknown]
  - Intentional product use issue [Unknown]
